FAERS Safety Report 8066593-0 (Version None)
Quarter: 2012Q1

REPORT INFORMATION
  Report Type: 
  Country: None (occurrence: None)
  Receive Date: 20120124
  Receipt Date: 20120117
  Transmission Date: 20120608
  Serious: Yes (Other)
  Sender: FDA-Public Use
  Company Number: PHHY2010DE11784

PATIENT
  Sex: Female

DRUGS (2)
  1. EXTAVIA [Suspect]
     Indication: MULTIPLE SCLEROSIS
     Dosage: 4 MIU, QOD
     Route: 058
     Dates: start: 20100201
  2. EXTAVIA [Suspect]
     Dosage: 8 MIU, QOD
     Route: 058

REACTIONS (15)
  - MUSCULAR WEAKNESS [None]
  - INJECTION SITE INDURATION [None]
  - TACHYCARDIA [None]
  - FUNGAL INFECTION [None]
  - GASTROENTERITIS [None]
  - SWELLING FACE [None]
  - EYE SWELLING [None]
  - CONFUSIONAL STATE [None]
  - INJECTION SITE INFLAMMATION [None]
  - WEIGHT DECREASED [None]
  - FURUNCLE [None]
  - NAUSEA [None]
  - LYMPHADENOPATHY [None]
  - PRURITUS [None]
  - DIZZINESS [None]
